FAERS Safety Report 12412008 (Version 1)
Quarter: 2016Q2

REPORT INFORMATION
  Report Type: Spontaneous
  Country: US (occurrence: None)
  Receive Date: 20160526
  Receipt Date: 20160526
  Transmission Date: 20160815
  Serious: No
  Sender: FDA-Public Use
  Company Number: None

PATIENT

DRUGS (1)
  1. 8.4% SODIUM BICARBONATE SYRINGE [Suspect]
     Active Substance: SODIUM BICARBONATE

REACTIONS (2)
  - Syringe issue [None]
  - Injury associated with device [None]

NARRATIVE: CASE EVENT DATE: 20160505
